FAERS Safety Report 6978328-0 (Version None)
Quarter: 2010Q3

REPORT INFORMATION
  Report Type: 
  Country: None (occurrence: None)
  Receive Date: 20100913
  Receipt Date: 20100908
  Transmission Date: 20110219
  Serious: Yes (Hospitalization)
  Sender: FDA-Public Use
  Company Number: NL-ASTRAZENECA-2010SE42128

PATIENT
  Age: 2637 Day
  Sex: Female
  Weight: 23 kg

DRUGS (1)
  1. ENTOCORT EC [Suspect]
     Indication: CROHN'S DISEASE
     Route: 048
     Dates: start: 20100107

REACTIONS (1)
  - INTRACRANIAL PRESSURE INCREASED [None]
